FAERS Safety Report 9969138 (Version 2)
Quarter: 2014Q1

REPORT INFORMATION
  Report Type: Report from Study
  Country: US (occurrence: US)
  Receive Date: 20140306
  Receipt Date: 20140306
  Transmission Date: 20141002
  Serious: Yes (Other)
  Sender: FDA-Public Use
  Company Number: US-ROCHE-1331007

PATIENT
  Age: 55 Year
  Sex: Female

DRUGS (9)
  1. LUCENTIS [Suspect]
     Indication: RETINAL DEGENERATION
     Route: 031
  2. LUCENTIS [Suspect]
     Indication: AGE-RELATED MACULAR DEGENERATION
  3. LUCENTIS [Suspect]
     Indication: AGE-RELATED MACULAR DEGENERATION
  4. LUCENTIS [Suspect]
     Indication: CHOROIDAL NEOVASCULARISATION
  5. LUCENTIS [Suspect]
     Indication: DIABETIC RETINOPATHY
  6. AVASTIN [Suspect]
     Indication: CHOROIDAL NEOVASCULARISATION
     Dosage: OD
     Route: 031
  7. AVASTIN [Suspect]
     Indication: AGE-RELATED MACULAR DEGENERATION
  8. TROPICAMIDE [Concomitant]
     Dosage: 0.5% - 1%
     Route: 065
  9. PHENYLEPHRINE [Concomitant]
     Dosage: 2.5% - 10%
     Route: 065

REACTIONS (2)
  - Eye irritation [Unknown]
  - Cataract [Unknown]
